FAERS Safety Report 8117104-2 (Version None)
Quarter: 2011Q4

REPORT INFORMATION
  Report Type: 
  Country: None (occurrence: None)
  Receive Date: 20111227
  Receipt Date: 20110207
  Transmission Date: 20120403
  Serious: Yes (Other)
  Sender: FDA-Public Use
  Company Number: PHHY2011US00878

PATIENT
  Age: 56 Year
  Sex: Female

DRUGS (2)
  1. FEMARA [Suspect]
     Indication: BREAST CANCER FEMALE
     Dosage: 2.5 MG, QD, ORAL
     Route: 048
     Dates: start: 20100806
  2. FEMARA [Suspect]
     Indication: BREAST CANCER FEMALE
     Dosage: 2.5 MG, QD, ORAL
     Route: 048
     Dates: start: 20101207

REACTIONS (6)
  - STRESS FRACTURE [None]
  - HYPOAESTHESIA [None]
  - OEDEMA PERIPHERAL [None]
  - ARTHRALGIA [None]
  - FOOT FRACTURE [None]
  - PAIN IN EXTREMITY [None]
